FAERS Safety Report 8924068 (Version 9)
Quarter: 2015Q4

REPORT INFORMATION
  Report Type: Report from Study
  Country: FR (occurrence: FR)
  Receive Date: 20121126
  Receipt Date: 20151218
  Transmission Date: 20160305
  Serious: Yes (Hospitalization)
  Sender: FDA-Public Use
  Company Number: FR-ROCHE-1024701

PATIENT
  Age: 85 Year
  Sex: Male
  Weight: 69 kg

DRUGS (19)
  1. APROVEL [Concomitant]
     Active Substance: IRBESARTAN
     Indication: HYPERTENSION
     Route: 065
     Dates: start: 20120424
  2. VISMODEGIB [Suspect]
     Active Substance: VISMODEGIB
     Route: 048
     Dates: start: 20111213
  3. PLAVIX [Concomitant]
     Active Substance: CLOPIDOGREL BISULFATE
     Indication: PLATELET AGGREGATION
     Route: 065
     Dates: start: 200501
  4. SEROPLEX [Concomitant]
     Active Substance: ESCITALOPRAM OXALATE
     Indication: DEPRESSION
     Route: 065
     Dates: start: 200801
  5. TEMESTA (FRANCE) [Concomitant]
     Indication: ANXIETY
     Dosage: INDICATION:ANXIOLYTIC
     Route: 065
     Dates: start: 199601
  6. DAFALGAN [Concomitant]
     Active Substance: ACETAMINOPHEN
     Indication: MYALGIA
     Route: 065
     Dates: start: 20110728
  7. CORDARONE [Concomitant]
     Active Substance: AMIODARONE HYDROCHLORIDE
     Indication: ARRHYTHMIA
     Route: 042
     Dates: start: 20111110, end: 20111110
  8. INEXIUM [Concomitant]
     Active Substance: ESOMEPRAZOLE
     Indication: GASTROINTESTINAL DISORDER
  9. DOMPERIDONE [Concomitant]
     Active Substance: DOMPERIDONE
     Indication: VOMITING
     Route: 065
     Dates: start: 199601
  10. PERMIXON [Concomitant]
     Active Substance: SAW PALMETTO
     Indication: BENIGN PROSTATIC HYPERPLASIA
     Route: 065
     Dates: start: 200101
  11. LANZOR [Concomitant]
     Active Substance: LANSOPRAZOLE
     Indication: GASTROINTESTINAL DISORDER
  12. VISMODEGIB [Suspect]
     Active Substance: VISMODEGIB
     Indication: BASAL CELL CARCINOMA
     Dosage: DATE OF LAST DOSE PRIOR TO SAE: 05/DEC/2011
     Route: 048
     Dates: start: 20110705, end: 20111206
  13. FLECAINE [Concomitant]
     Active Substance: FLECAINIDE
     Indication: ARRHYTHMIA
     Route: 065
     Dates: start: 200501, end: 20111110
  14. DOMPERIDONE [Concomitant]
     Active Substance: DOMPERIDONE
     Indication: GASTROINTESTINAL DISORDER
  15. GAVISCON (ALGINIC ACID) [Concomitant]
     Indication: GASTROOESOPHAGEAL REFLUX DISEASE
     Route: 065
     Dates: start: 199601
  16. LANZOR [Concomitant]
     Active Substance: LANSOPRAZOLE
     Indication: ULCER
     Route: 065
     Dates: start: 199601
  17. CORDARONE [Concomitant]
     Active Substance: AMIODARONE HYDROCHLORIDE
     Route: 065
     Dates: start: 20111111
  18. INEXIUM [Concomitant]
     Active Substance: ESOMEPRAZOLE
     Indication: ULCER
     Route: 065
     Dates: start: 20111111
  19. FUCIDINE [Concomitant]
     Active Substance: FUSIDIC ACID
     Dosage: INDICATION; ANTI-BACTERIAL
     Route: 065
     Dates: start: 20111221, end: 20111231

REACTIONS (1)
  - Squamous cell carcinoma of skin [Recovered/Resolved]

NARRATIVE: CASE EVENT DATE: 20111025
